FAERS Safety Report 18198076 (Version 1)
Quarter: 2020Q3

REPORT INFORMATION
  Report Type: Spontaneous
  Country: US (occurrence: US)
  Receive Date: 20200826
  Receipt Date: 20200826
  Transmission Date: 20201103
  Serious: Yes (Death)
  Sender: FDA-Public Use
  Company Number: None

PATIENT
  Age: 59 Year
  Sex: Male

DRUGS (9)
  1. HUMALOG [Concomitant]
     Active Substance: INSULIN LISPRO
  2. ZYLPRM [Concomitant]
  3. ZOCOR [Concomitant]
     Active Substance: SIMVASTATIN
  4. ALDACTONE [Concomitant]
     Active Substance: SPIRONOLACTONE
  5. CAPECITABINE. [Suspect]
     Active Substance: CAPECITABINE
     Indication: COLON CANCER
     Dosage: ?          OTHER FREQUENCY:BID X 14D/ OFF 7D;?
     Route: 048
     Dates: start: 20200710
  6. FUROSEMIDE. [Concomitant]
     Active Substance: FUROSEMIDE
  7. JANUVIA [Concomitant]
     Active Substance: SITAGLIPTIN PHOSPHATE
  8. LACTULOSE. [Concomitant]
     Active Substance: LACTULOSE
  9. VIT D [Concomitant]
     Active Substance: VITAMIN D NOS

REACTIONS (1)
  - Death [None]
